FAERS Safety Report 7396630-8 (Version None)
Quarter: 2011Q2

REPORT INFORMATION
  Report Type: 
  Country: None (occurrence: None)
  Receive Date: 20110406
  Receipt Date: 20110324
  Transmission Date: 20111010
  Serious: Yes (Other)
  Sender: FDA-Public Use
  Company Number: PHHY2011US23959

PATIENT
  Sex: Female

DRUGS (2)
  1. DIOVAN [Suspect]
     Dosage: 160 MG, QD
  2. DRUG USED IN DIABETES [Concomitant]

REACTIONS (4)
  - ANKLE FRACTURE [None]
  - IMMOBILE [None]
  - DIZZINESS [None]
  - NAUSEA [None]
